FAERS Safety Report 7095428-8 (Version None)
Quarter: 2010Q4

REPORT INFORMATION
  Report Type: 
  Country: None (occurrence: None)
  Receive Date: 20101111
  Receipt Date: 20101109
  Transmission Date: 20110411
  Serious: Yes (Death, Life-Threatening, Hospitalization, Other)
  Sender: FDA-Public Use
  Company Number: FR-BRISTOL-MYERS SQUIBB COMPANY-15249329

PATIENT
  Age: 53 Year
  Sex: Male

DRUGS (11)
  1. SUSTIVA [Suspect]
     Indication: HIV INFECTION
     Route: 048
     Dates: start: 20040101
  2. VIDEX [Suspect]
  3. GLUCOVANCE [Suspect]
     Indication: TYPE 2 DIABETES MELLITUS
     Dosage: 1DF= 2 INTAKES
     Route: 048
     Dates: start: 20050101
  4. ISENTRESS [Suspect]
     Indication: HIV INFECTION
     Dosage: 2 SCORED TABLETS
     Route: 048
     Dates: start: 20100129, end: 20100304
  5. TELZIR [Suspect]
     Indication: HIV INFECTION
     Route: 048
     Dates: start: 20040101
  6. NORVIR [Suspect]
     Indication: HIV INFECTION
     Route: 048
     Dates: start: 20040101
  7. REVATIO [Suspect]
     Indication: PULMONARY HYPERTENSION
     Route: 048
     Dates: start: 20090701
  8. RISPERDAL [Concomitant]
     Indication: DEPRESSION
     Dates: start: 20050101
  9. EFFEXOR [Concomitant]
     Indication: DEPRESSION
     Dates: start: 20050101
  10. MEPRONIZINE [Concomitant]
     Indication: DEPRESSION
     Route: 048
  11. ATARAX [Concomitant]
     Indication: DEPRESSION
     Dates: start: 20050101

REACTIONS (5)
  - HEPATIC FAILURE [None]
  - HYPERLACTACIDAEMIA [None]
  - METABOLIC ACIDOSIS [None]
  - SHOCK [None]
  - VENTRICULAR ARRHYTHMIA [None]
